FAERS Safety Report 20928667 (Version 4)
Quarter: 2022Q3

REPORT INFORMATION
  Report Type: Report from Study
  Country: US (occurrence: US)
  Receive Date: 20220607
  Receipt Date: 20220926
  Transmission Date: 20221027
  Serious: Yes (Other)
  Sender: FDA-Public Use
  Company Number: US-ABBVIE-22K-163-4424600-00

PATIENT
  Sex: Female
  Weight: 72.574 kg

DRUGS (16)
  1. HUMIRA [Suspect]
     Active Substance: ADALIMUMAB
     Indication: Uveitis
     Dosage: CITRATE FREE
     Route: 058
     Dates: start: 20210506
  2. CELLCEPT [Concomitant]
     Active Substance: MYCOPHENOLATE MOFETIL
     Indication: Systemic lupus erythematosus
  3. NORLYDA [Concomitant]
     Active Substance: NORETHINDRONE
     Indication: Contraception
  4. COZAAR [Concomitant]
     Active Substance: LOSARTAN POTASSIUM
     Indication: Renal disorder prophylaxis
  5. PROLENSA [Concomitant]
     Active Substance: BROMFENAC SODIUM
     Indication: Retinal oedema
     Dates: start: 202208
  6. NEXIUM [Concomitant]
     Active Substance: ESOMEPRAZOLE MAGNESIUM
     Indication: Gastrooesophageal reflux disease
  7. NORTRIPTYLINE [Concomitant]
     Active Substance: NORTRIPTYLINE
     Indication: Anxiety
  8. MODERNA COVID-19 VACCINE [Concomitant]
     Active Substance: ELASOMERAN
     Indication: COVID-19 immunisation
     Dosage: ONE IN ONCE, THIRD (BOOSTER) DOSE
     Route: 030
     Dates: start: 202108, end: 202108
  9. MODERNA COVID-19 VACCINE [Concomitant]
     Active Substance: ELASOMERAN
     Indication: COVID-19 immunisation
     Dosage: ONE IN ONCE, SECOND DOSE
     Route: 030
     Dates: start: 202105, end: 202105
  10. MODERNA COVID-19 VACCINE [Concomitant]
     Active Substance: ELASOMERAN
     Indication: COVID-19 immunisation
     Dosage: ONE IN ONCE, FIRST DOSE
     Route: 030
     Dates: start: 202104, end: 202104
  11. PLAQUENIL [Concomitant]
     Active Substance: HYDROXYCHLOROQUINE SULFATE
     Indication: Systemic lupus erythematosus
  12. LUMIGAN [Concomitant]
     Active Substance: BIMATOPROST
     Indication: Glaucoma
  13. BRIMONIDINE [Concomitant]
     Active Substance: BRIMONIDINE TARTRATE
     Indication: Glaucoma
  14. RHOPRESSA [Concomitant]
     Active Substance: NETARSUDIL MESYLATE
     Indication: Intraocular pressure increased
  15. DORZOLAMIDE [Concomitant]
     Active Substance: DORZOLAMIDE
     Indication: Glaucoma
  16. TACROLIMUS [Concomitant]
     Active Substance: TACROLIMUS
     Indication: Uveitis

REACTIONS (4)
  - Intraocular pressure increased [Recovering/Resolving]
  - Glaucoma [Recovering/Resolving]
  - Retinal oedema [Not Recovered/Not Resolved]
  - Retinal oedema [Unknown]

NARRATIVE: CASE EVENT DATE: 20220101
